FAERS Safety Report 24000927 (Version 2)
Quarter: 2024Q3

REPORT INFORMATION
  Report Type: Spontaneous
  Country: BR (occurrence: BR)
  Receive Date: 20240621
  Receipt Date: 20240712
  Transmission Date: 20241017
  Serious: Yes (Other)
  Sender: IPSEN
  Company Number: BR-IPSEN Group, Research and Development-2024-12077

PATIENT
  Sex: Female

DRUGS (2)
  1. DYSPORT [Suspect]
     Active Substance: ABOBOTULINUMTOXINA
     Indication: Skin wrinkling
     Dosage: TOUCH-UP FIFTEEN DAYS : ORBICULARIS OCULI
     Route: 065
     Dates: start: 2024, end: 2024
  2. DYSPORT [Suspect]
     Active Substance: ABOBOTULINUMTOXINA
     Route: 065

REACTIONS (2)
  - Lip oedema [Unknown]
  - Face oedema [Unknown]

NARRATIVE: CASE EVENT DATE: 20240101
